FAERS Safety Report 9974063 (Version 1)
Quarter: 2014Q1

REPORT INFORMATION
  Report Type: Spontaneous
  Country: US (occurrence: US)
  Receive Date: 20140306
  Receipt Date: 20140306
  Transmission Date: 20141002
  Serious: Yes (Disabling)
  Sender: FDA-Public Use
  Company Number: US-GLAXOSMITHKLINE-A1062538A

PATIENT
  Age: 80 Year
  Sex: Male

DRUGS (14)
  1. VOTRIENT [Suspect]
     Indication: RENAL CELL CARCINOMA
     Dosage: 800MG UNKNOWN
     Route: 048
     Dates: start: 2013
  2. MICARDIS [Concomitant]
     Dosage: 20MG TWICE PER DAY
  3. GABAPENTIN [Concomitant]
  4. TRAZODONE [Concomitant]
     Dosage: 50MG AT NIGHT
  5. NIACIN [Concomitant]
     Dosage: 1500MG AT NIGHT
  6. ZETIA [Concomitant]
     Dosage: 10MG PER DAY
  7. CRESTOR [Concomitant]
     Dosage: 5MG PER DAY
  8. ALLOPURINOL [Concomitant]
     Dosage: 150MG PER DAY
  9. NUVIGIL [Concomitant]
     Dosage: 250MG PER DAY
  10. VITAMIN D3 [Concomitant]
     Dosage: 50000UNIT WEEKLY
  11. FISH OIL [Concomitant]
  12. LOMOTIL [Concomitant]
  13. TYLENOL [Concomitant]
     Dosage: 2TAB AS REQUIRED
  14. ASPIRIN [Concomitant]
     Dosage: 81MG PER DAY

REACTIONS (9)
  - Fatigue [Unknown]
  - Asthenia [Unknown]
  - Diarrhoea [Unknown]
  - Impaired healing [Unknown]
  - Lip oedema [Unknown]
  - Ageusia [Unknown]
  - Hypotension [Unknown]
  - Hypertension [Unknown]
  - Adverse event [Unknown]
